FAERS Safety Report 13405137 (Version 2)
Quarter: 2017Q2

REPORT INFORMATION
  Report Type: Spontaneous
  Country: FR (occurrence: FR)
  Receive Date: 20170405
  Receipt Date: 20170616
  Transmission Date: 20170830
  Serious: Yes (Other)
  Sender: FDA-Public Use
  Company Number: FR-ROCHE-1915653

PATIENT
  Age: 50 Year
  Sex: Female
  Weight: 47 kg

DRUGS (8)
  1. AVASTIN [Suspect]
     Active Substance: BEVACIZUMAB
     Indication: OVARIAN CANCER
     Route: 042
     Dates: start: 20160921
  2. DOLIPRANE [Concomitant]
     Active Substance: ACETAMINOPHEN
     Dosage: IF PAIN
     Route: 065
  3. UVEDOSE [Concomitant]
     Active Substance: CHOLECALCIFEROL
     Route: 048
  4. AVASTIN [Suspect]
     Active Substance: BEVACIZUMAB
     Route: 042
     Dates: start: 201611
  5. OROCAL (FRANCE) [Concomitant]
     Route: 048
  6. PACLITAXEL. [Concomitant]
     Active Substance: PACLITAXEL
  7. DIOSMINE [Concomitant]
     Active Substance: DIOSMIN
     Route: 048
  8. CARBOPLATINE [Concomitant]
     Active Substance: CARBOPLATIN

REACTIONS (3)
  - Myalgia [Not Recovered/Not Resolved]
  - Tendon pain [Not Recovered/Not Resolved]
  - Tendonitis [Unknown]

NARRATIVE: CASE EVENT DATE: 201611
